FAERS Safety Report 13561826 (Version 2)
Quarter: 2017Q2

REPORT INFORMATION
  Report Type: Spontaneous
  Country: US (occurrence: US)
  Receive Date: 20170518
  Receipt Date: 20170531
  Transmission Date: 20170830
  Serious: Yes (Other)
  Sender: FDA-Public Use
  Company Number: US-BAUSCH-BL-2017-013570

PATIENT
  Sex: Female

DRUGS (1)
  1. ADVANCED EYE RELIEF/EYE WASH [Suspect]
     Active Substance: WATER
     Indication: PRODUCT USED FOR UNKNOWN INDICATION
     Route: 065

REACTIONS (5)
  - Adverse reaction [Recovered/Resolved]
  - Lacrimation increased [Recovered/Resolved]
  - Eye swelling [Recovered/Resolved]
  - Blindness [Recovered/Resolved]
  - Vision blurred [Recovered/Resolved]
